FAERS Safety Report 5165128-X (Version None)
Quarter: 2006Q4

REPORT INFORMATION
  Report Type: 
  Country: None (occurrence: None)
  Receive Date: 20061127
  Receipt Date: 20061115
  Transmission Date: 20070319
  Serious: Yes (Death, Hospitalization)
  Sender: FDA-Public Use
  Company Number: HQWYE746116NOV06

PATIENT
  Age: 67 Year
  Sex: Male

DRUGS (6)
  1. CORDARONE [Suspect]
     Indication: ATRIAL FIBRILLATION
     Dosage: 200 MG 1X PER 1 DAY ORAL
     Route: 048
     Dates: start: 20010201, end: 20060901
  2. CORDARONE [Suspect]
     Indication: ATRIAL FIBRILLATION
     Dosage: 200 MG 1X PER 1 DAY ORAL
     Route: 048
     Dates: start: 20060201
  3. BERIPLEX HS (FACTOR II (PROTHROMBIN)/FACTOR IX COMPLEX HUMAN/FACTOR VI [Suspect]
     Dosage: 2000 IU 1X PER 1 DAY INTRAVENOUS
     Route: 042
     Dates: start: 20060930
  4. LISINOPRIL [Concomitant]
  5. WARFARIN SODIUM [Concomitant]
  6. IRBESARTAN [Concomitant]

REACTIONS (3)
  - HYPOKINESIA [None]
  - PULMONARY EMBOLISM [None]
  - PULMONARY FIBROSIS [None]
